FAERS Safety Report 10594548 (Version 3)
Quarter: 2014Q4

REPORT INFORMATION
  Report Type: Report from Study
  Country: CA (occurrence: CA)
  Receive Date: 20141120
  Receipt Date: 20141203
  Transmission Date: 20150529
  Serious: Yes (Death, Other)
  Sender: FDA-Public Use
  Company Number: CA-ROCHE-1399938

PATIENT
  Age: 37 Year
  Sex: Male
  Weight: 72.3 kg

DRUGS (8)
  1. AVASTIN [Suspect]
     Active Substance: BEVACIZUMAB
     Indication: BRAIN NEOPLASM
     Route: 042
     Dates: start: 20131104
  2. AVASTIN [Suspect]
     Active Substance: BEVACIZUMAB
     Indication: GLIOBLASTOMA
     Route: 042
     Dates: start: 20130307
  3. AVASTIN [Suspect]
     Active Substance: BEVACIZUMAB
     Route: 042
     Dates: start: 20141031, end: 20141031
  4. HYDROMORPHONE [Concomitant]
     Active Substance: HYDROMORPHONE
  5. KEPPRA [Concomitant]
     Active Substance: LEVETIRACETAM
  6. ATIVAN [Concomitant]
     Active Substance: LORAZEPAM
  7. DEXAMETHASONE. [Concomitant]
     Active Substance: DEXAMETHASONE
     Dosage: TAPERING DOSE
     Route: 065
  8. TRAZODONE [Concomitant]
     Active Substance: TRAZODONE HYDROCHLORIDE

REACTIONS (3)
  - Seizure [Unknown]
  - Malignant neoplasm progression [Fatal]
  - Weight decreased [Unknown]

NARRATIVE: CASE EVENT DATE: 201411
